FAERS Safety Report 8840990 (Version 2)
Quarter: 2012Q4

REPORT INFORMATION
  Report Type: 
  Country: US (occurrence: US)
  Receive Date: 20121015
  Receipt Date: 20121129
  Transmission Date: 20130627
  Serious: Yes (Other)
  Sender: FDA-Public Use
  Company Number: US-ROCHE-1139041

PATIENT
  Sex: Male

DRUGS (1)
  1. PROTROPIN [Suspect]
     Indication: BODY HEIGHT BELOW NORMAL
     Route: 058

REACTIONS (1)
  - Asthma [Unknown]
